FAERS Safety Report 18526937 (Version 1)
Quarter: 2020Q4

REPORT INFORMATION
  Report Type: Spontaneous
  Country: US (occurrence: US)
  Receive Date: 20201120
  Receipt Date: 20201120
  Transmission Date: 20210114
  Serious: Yes (Other)
  Sender: FDA-Public Use
  Company Number: US-PFIZER INC-2019527568

PATIENT
  Age: 71 Year
  Sex: Female
  Weight: 55.79 kg

DRUGS (1)
  1. PREMARIN [Suspect]
     Active Substance: ESTROGENS, CONJUGATED
     Dosage: 1 G, 3 TIMES A WEEK

REACTIONS (5)
  - Bacterial vaginosis [Unknown]
  - Contraindicated product administered [Unknown]
  - Device issue [Unknown]
  - Incorrect dose administered by device [Unknown]
  - Off label use [Unknown]
